FAERS Safety Report 8895640 (Version 1)
Quarter: 2012Q4

REPORT INFORMATION
  Report Type: 
  Country: CH (occurrence: CH)
  Receive Date: 20121108
  Receipt Date: 20121108
  Transmission Date: 20130627
  Serious: Yes (Hospitalization, Congenital Anomaly)
  Sender: FDA-Public Use
  Company Number: CH-PFIZER INC-2012272515

PATIENT
  Sex: Male
  Weight: 1.9 kg

DRUGS (4)
  1. PODOMEXEF [Suspect]
     Indication: BACTERIAL INFECTION
     Dosage: 200 mg, 2x/day
     Route: 064
     Dates: start: 2012, end: 2012
  2. TRIZIVIR [Suspect]
     Indication: ASYMPTOMATIC HUMAN IMMUNODEFICIENCY VIRUS TYPE I INFECTION
     Dosage: 1 DF, 2x/day (600/300/600 mg)
     Route: 064
     Dates: start: 2010, end: 20120228
  3. TRUVADA [Suspect]
     Indication: ASYMPTOMATIC HUMAN IMMUNODEFICIENCY VIRUS TYPE I INFECTION
     Dosage: 1 DF, 1x/day (300/200 mg)
     Route: 064
     Dates: start: 20120229, end: 20121002
  4. KALETRA [Suspect]
     Indication: ASYMPTOMATIC HUMAN IMMUNODEFICIENCY VIRUS TYPE I INFECTION
     Dosage: 1 DF, 1x/day (200/50 mg)
     Route: 064
     Dates: start: 20120229, end: 20121002

REACTIONS (11)
  - Maternal exposure timing unspecified [Not Recovered/Not Resolved]
  - Apgar score low [Recovered/Resolved]
  - Neonatal asphyxia [Recovered/Resolved]
  - Lactic acidosis [Recovered/Resolved]
  - Small for dates baby [Not Recovered/Not Resolved]
  - Renal impairment [Recovering/Resolving]
  - Congenital hearing disorder [Not Recovered/Not Resolved]
  - Cytogenetic abnormality [Not Recovered/Not Resolved]
  - Renal aplasia [Not Recovered/Not Resolved]
  - Dysmorphism [Not Recovered/Not Resolved]
  - Torticollis [Not Recovered/Not Resolved]
